FAERS Safety Report 5293852-7 (Version None)
Quarter: 2007Q2

REPORT INFORMATION
  Report Type: 
  Country: None (occurrence: None)
  Receive Date: 20070411
  Receipt Date: 20070330
  Transmission Date: 20071010
  Serious: Yes (Hospitalization)
  Sender: FDA-Public Use
  Company Number: NO-MERCK-0704NOR00001

PATIENT
  Age: 83 Year
  Sex: Female

DRUGS (3)
  1. FOSAMAX [Suspect]
     Route: 065
     Dates: end: 20070101
  2. ASPIRIN AND MAGNESIUM OXIDE [Suspect]
     Route: 048
     Dates: end: 20070101
  3. DICLOFENAC [Suspect]
     Indication: PAIN
     Route: 048
     Dates: end: 20070101

REACTIONS (7)
  - BLOOD CALCIUM DECREASED [None]
  - BLOOD SODIUM DECREASED [None]
  - DRUG INTERACTION [None]
  - DUODENAL ULCER [None]
  - GASTROINTESTINAL HAEMORRHAGE [None]
  - HAEMOGLOBIN DECREASED [None]
  - OESOPHAGEAL ULCER [None]
